FAERS Safety Report 8437456-3 (Version None)
Quarter: 2012Q2

REPORT INFORMATION
  Report Type: 
  Country: None (occurrence: None)
  Receive Date: 20120614
  Receipt Date: 20120327
  Transmission Date: 20120825
  Serious: No
  Sender: FDA-Public Use
  Company Number: US-AMGEN-USASP2012019837

PATIENT
  Age: 80 Year
  Sex: Female

DRUGS (5)
  1. VITAMIN D [Concomitant]
  2. PROLIA [Suspect]
     Indication: OSTEOPOROSIS POSTMENOPAUSAL
     Dosage: 60 MG, Q6MO
     Dates: start: 20120201
  3. CALCIUM [Concomitant]
  4. OSTEO BI-FLEX [Concomitant]
  5. MULTI-VITAMIN [Concomitant]

REACTIONS (8)
  - JOINT INJURY [None]
  - FATIGUE [None]
  - CHILLS [None]
  - BACK PAIN [None]
  - LIGAMENT SPRAIN [None]
  - TENDONITIS [None]
  - PAIN [None]
  - INFLUENZA LIKE ILLNESS [None]
